FAERS Safety Report 7413941-8 (Version None)
Quarter: 2011Q2

REPORT INFORMATION
  Report Type: 
  Country: None (occurrence: None)
  Receive Date: 20110414
  Receipt Date: 20110406
  Transmission Date: 20111010
  Serious: Yes (Hospitalization)
  Sender: FDA-Public Use
  Company Number: US-BIOGENIDEC-2011BI013007

PATIENT
  Sex: Female

DRUGS (1)
  1. AVONEX [Suspect]
     Indication: MULTIPLE SCLEROSIS
     Route: 030

REACTIONS (6)
  - ABDOMINAL DISCOMFORT [None]
  - MULTIPLE SCLEROSIS RELAPSE [None]
  - SOMNOLENCE [None]
  - MALAISE [None]
  - MENTAL IMPAIRMENT [None]
  - APATHY [None]
